FAERS Safety Report 18588374 (Version 1)
Quarter: 2020Q4

REPORT INFORMATION
  Report Type: Spontaneous
  Country: IT (occurrence: IT)
  Receive Date: 20201207
  Receipt Date: 20201207
  Transmission Date: 20210114
  Serious: Yes (Death)
  Sender: FDA-Public Use
  Company Number: IT-CELGENEUS-ITA-20201201339

PATIENT
  Age: 86 Year
  Sex: Male
  Weight: 55 kg

DRUGS (4)
  1. VIDAZA [Suspect]
     Active Substance: AZACITIDINE
     Indication: ACUTE MYELOID LEUKAEMIA
     Dosage: 75 MILLIGRAM/SQ. METER
     Route: 058
     Dates: start: 20200817, end: 202008
  2. VIDAZA [Suspect]
     Active Substance: AZACITIDINE
     Dosage: DECREASED DOSE
     Route: 058
     Dates: start: 202008, end: 20200821
  3. VENETOCLAX. [Suspect]
     Active Substance: VENETOCLAX
     Dosage: DECREASED DOSE
     Route: 048
     Dates: start: 202008, end: 20200829
  4. VENETOCLAX. [Suspect]
     Active Substance: VENETOCLAX
     Indication: ACUTE MYELOID LEUKAEMIA
     Dosage: 75 MILLIGRAM/SQ. METER
     Route: 048
     Dates: start: 20200817, end: 202008

REACTIONS (2)
  - Neutropenia [Fatal]
  - Febrile neutropenia [Fatal]

NARRATIVE: CASE EVENT DATE: 20200817
